FAERS Safety Report 23669095 (Version 1)
Quarter: 2024Q1

REPORT INFORMATION
  Report Type: Spontaneous
  Country: US (occurrence: US)
  Receive Date: 20240325
  Receipt Date: 20240325
  Transmission Date: 20240410
  Serious: Yes (Hospitalization, Other)
  Sender: FDA-Public Use
  Company Number: US-BRACCO-2024US01352

PATIENT
  Age: 74 Year
  Sex: Female

DRUGS (1)
  1. BARIUM SULFATE [Suspect]
     Active Substance: BARIUM SULFATE
     Indication: Barium enema

REACTIONS (2)
  - Gastrointestinal haemorrhage [Recovering/Resolving]
  - Faecalith [Recovering/Resolving]
